FAERS Safety Report 11989748 (Version 1)
Quarter: 2016Q1

REPORT INFORMATION
  Report Type: Report from Study
  Country: US (occurrence: US)
  Receive Date: 20160202
  Receipt Date: 20160202
  Transmission Date: 20160526
  Serious: No
  Sender: FDA-Public Use
  Company Number: US-ABBVIE-15P-163-1493529-00

PATIENT
  Sex: Female

DRUGS (1)
  1. LUPRON DEPOT [Suspect]
     Active Substance: LEUPROLIDE ACETATE
     Indication: ENDOMETRIOSIS
     Route: 030
     Dates: start: 2007

REACTIONS (4)
  - Hypothyroidism [Unknown]
  - Endometriosis [Unknown]
  - Exposure during pregnancy [Unknown]
  - Feeling cold [Unknown]

NARRATIVE: CASE EVENT DATE: 2012
